FAERS Safety Report 10163183 (Version 3)
Quarter: 2014Q4

REPORT INFORMATION
  Report Type: Spontaneous
  Country: JP (occurrence: JP)
  Receive Date: 20140509
  Receipt Date: 20141111
  Transmission Date: 20150528
  Serious: Yes (Hospitalization, Other)
  Sender: FDA-Public Use
  Company Number: JP-GLAXOSMITHKLINE-B0992061A

PATIENT
  Age: 75 Year
  Sex: Female
  Weight: 48 kg

DRUGS (6)
  1. VALACICLOVIR HYDROCHLORIDE [Suspect]
     Active Substance: VALACYCLOVIR HYDROCHLORIDE
     Indication: HERPES ZOSTER
     Dosage: 1000 MG, TID
     Route: 048
     Dates: start: 20140408, end: 20140410
  2. GASTER [Concomitant]
     Active Substance: FAMOTIDINE
     Indication: GASTRITIS
     Dosage: 20 MG, QD
     Route: 048
     Dates: end: 20140410
  3. UBRETID [Concomitant]
     Active Substance: DISTIGMINE BROMIDE
     Indication: DYSURIA
     Dosage: 5 MG, QD
     Route: 048
     Dates: end: 20140410
  4. LYRICA [Concomitant]
     Active Substance: PREGABALIN
     Indication: TROPICAL SPASTIC PARESIS
     Dosage: 150 MG, BID
     Route: 048
     Dates: end: 20140410
  5. LIPITOR [Concomitant]
     Active Substance: ATORVASTATIN CALCIUM
     Indication: DYSLIPIDAEMIA
     Dosage: 5 MG, QD
     Route: 048
     Dates: end: 20140410
  6. MAGMITT [Concomitant]
     Active Substance: MAGNESIUM OXIDE
     Indication: CONSTIPATION
     Dosage: 750 MG, QD
     Route: 048
     Dates: end: 20140410

REACTIONS (7)
  - Depressed level of consciousness [Recovering/Resolving]
  - Renal disorder [Recovered/Resolved]
  - Acute kidney injury [Recovered/Resolved]
  - Altered state of consciousness [Recovered/Resolved]
  - Renal impairment [Recovered/Resolved]
  - Toxic encephalopathy [Recovering/Resolving]
  - Decreased appetite [Unknown]

NARRATIVE: CASE EVENT DATE: 201404
